FAERS Safety Report 7583517-0 (Version None)
Quarter: 2011Q2

REPORT INFORMATION
  Report Type: 
  Country: None (occurrence: None)
  Receive Date: 20110630
  Receipt Date: 20110622
  Transmission Date: 20111010
  Serious: Yes (Hospitalization, Other)
  Sender: FDA-Public Use
  Company Number: IL-ROCHE-777053

PATIENT
  Age: 76 Year
  Sex: Male

DRUGS (12)
  1. OXALIPLATIN [Suspect]
     Route: 065
     Dates: start: 20070301, end: 20090901
  2. VASCASE [Concomitant]
     Indication: HYPERTENSION
  3. IRINOTECAN HYDROCHLORIDE [Suspect]
     Route: 065
  4. IRINOTECAN HYDROCHLORIDE [Suspect]
     Dosage: 2ND LINE THERAPY DOSE REDUCED.
     Route: 065
  5. LEUCOVORIN CALCIUM [Concomitant]
  6. MITOMYCIN [Concomitant]
     Dates: start: 20101001, end: 20110201
  7. W [Concomitant]
     Dosage: FOR 20 CYCLES
  8. XELODA [Suspect]
     Route: 065
  9. FLUOROURACIL [Concomitant]
     Dosage: FOR 20 CYCLES.
     Dates: start: 20091001
  10. FLUOROURACIL [Concomitant]
     Dates: start: 20070301, end: 20070901
  11. AVASTIN [Suspect]
     Dosage: 2 ND CYCLE. FOR 20 CYCLES
     Route: 065
     Dates: end: 20101001
  12. AVASTIN [Suspect]
     Route: 065
     Dates: start: 20070301, end: 20090901

REACTIONS (9)
  - JAUNDICE [None]
  - NAUSEA [None]
  - PARAESTHESIA [None]
  - DEPRESSION [None]
  - ALOPECIA [None]
  - DECREASED APPETITE [None]
  - PULMONARY EMBOLISM [None]
  - ASTHENIA [None]
  - FATIGUE [None]
